FAERS Safety Report 12888015 (Version 2)
Quarter: 2016Q4

REPORT INFORMATION
  Report Type: Spontaneous
  Country: TR (occurrence: TR)
  Receive Date: 20161027
  Receipt Date: 20161104
  Transmission Date: 20170207
  Serious: Yes (Hospitalization)
  Sender: FDA-Public Use
  Company Number: TR-SUN PHARMACEUTICAL INDUSTRIES LTD-2016RR-126446

PATIENT
  Age: 11 Year
  Sex: Male

DRUGS (2)
  1. DOLVEN [Suspect]
     Active Substance: IBUPROFEN
     Indication: PYREXIA
  2. DOLVEN [Suspect]
     Active Substance: IBUPROFEN
     Indication: MYALGIA
     Dosage: FOR A FEW DAYS
     Route: 065

REACTIONS (1)
  - Drug reaction with eosinophilia and systemic symptoms [Recovered/Resolved]
